FAERS Safety Report 9475714 (Version 2)
Quarter: 2013Q3

REPORT INFORMATION
  Report Type: Report from Study
  Country: NL (occurrence: NL)
  Receive Date: 20130826
  Receipt Date: 20130906
  Transmission Date: 20140515
  Serious: Yes (Death)
  Sender: FDA-Public Use
  Company Number: PHHY2013NL091637

PATIENT
  Sex: Male

DRUGS (7)
  1. ZOMETA [Suspect]
     Indication: METASTASES TO BONE
     Dosage: 4 MG/ 100 ML, EVERY 4 WEEKS
     Route: 042
  2. ZOMETA [Suspect]
     Dosage: 4 MG/ 100 ML, EVERY 4 WEEKS
     Route: 042
     Dates: start: 20121126
  3. ZOMETA [Suspect]
     Dosage: 4 MG/ 100 ML, EVERY 4 WEEKS
     Route: 042
     Dates: start: 20130708
  4. ZOMETA [Suspect]
     Dosage: 4 MG/ 100 ML, EVERY 4 WEEKS
     Route: 042
     Dates: start: 20130805
  5. FENTANYL [Concomitant]
     Dosage: UNK UKN, UNK
  6. OXYNORM [Concomitant]
     Dosage: UNK UKN, UNK
  7. LYRICA [Concomitant]
     Dosage: UNK UKN, UNK

REACTIONS (2)
  - Terminal state [Fatal]
  - Metastases to liver [Fatal]
